FAERS Safety Report 25680866 (Version 1)
Quarter: 2025Q3

REPORT INFORMATION
  Report Type: Spontaneous
  Country: US (occurrence: US)
  Receive Date: 20250814
  Receipt Date: 20250814
  Transmission Date: 20251020
  Serious: Yes (Hospitalization, Other)
  Sender: JUBILANT
  Company Number: None

PATIENT
  Age: 29 Year
  Sex: Male

DRUGS (3)
  1. BUPROPION [Suspect]
     Active Substance: BUPROPION
     Indication: Product used for unknown indication
     Dosage: 150 MG, ONCE PER DAY (FOR SEVERAL MONTHS)
  2. ESCITALOPRAM [Suspect]
     Active Substance: ESCITALOPRAM OXALATE
     Indication: Product used for unknown indication
     Dosage: 20 MG, ONCE PER DAY (FOR SEVERAL MONTHS)
  3. NALTREXONE [Suspect]
     Active Substance: NALTREXONE
     Indication: Obsessive-compulsive disorder
     Dosage: 50 MG, ONCE PER DAY (THREE MONTHS EARLIER)

REACTIONS (2)
  - Serotonin syndrome [Recovered/Resolved]
  - Sleep deficit [Recovered/Resolved]
